FAERS Safety Report 16539244 (Version 1)
Quarter: 2019Q3

REPORT INFORMATION
  Report Type: Spontaneous
  Country: US (occurrence: US)
  Receive Date: 20190708
  Receipt Date: 20190708
  Transmission Date: 20191004
  Serious: No
  Sender: FDA-Public Use
  Company Number: US-TEVA-2019-US-1073274

PATIENT
  Age: 57 Year
  Sex: Female

DRUGS (1)
  1. DIAZEPAM. [Suspect]
     Active Substance: DIAZEPAM
     Dosage: 10 MG
     Route: 065

REACTIONS (4)
  - Chest discomfort [Unknown]
  - Anxiety [Unknown]
  - Malaise [Unknown]
  - Insomnia [Unknown]
